FAERS Safety Report 15482833 (Version 1)
Quarter: 2018Q4

REPORT INFORMATION
  Report Type: Spontaneous
  Country: US (occurrence: US)
  Receive Date: 20181010
  Receipt Date: 20181010
  Transmission Date: 20190205
  Serious: Yes (Hospitalization)
  Sender: FDA-Public Use
  Company Number: US-ALKERMES INC.-ALK-2018-005497

PATIENT
  Age: 51 Year
  Sex: Female

DRUGS (1)
  1. VIVITROL [Suspect]
     Active Substance: NALTREXONE
     Indication: ALCOHOLISM
     Dosage: 380 MG, QMO
     Route: 030
     Dates: start: 20180822

REACTIONS (4)
  - Drug effect incomplete [Not Recovered/Not Resolved]
  - Aphasia [Unknown]
  - Hypokinesia [Unknown]
  - Alcoholism [Unknown]

NARRATIVE: CASE EVENT DATE: 2018
